FAERS Safety Report 6678013-9 (Version None)
Quarter: 2010Q2

REPORT INFORMATION
  Report Type: 
  Country: None (occurrence: None)
  Receive Date: 20100412
  Receipt Date: 20100312
  Transmission Date: 20101027
  Serious: No
  Sender: FDA-Public Use
  Company Number: US-BAYER-201013178BCC

PATIENT
  Age: 88 Year
  Sex: Female
  Weight: 50 kg

DRUGS (4)
  1. ALEVE [Suspect]
     Indication: ARTHRALGIA
     Dosage: TOTAL DAILY DOSE: 440 MG  UNIT DOSE: 220 MG
     Route: 048
     Dates: start: 20100312
  2. VERAPAMIL [Concomitant]
  3. LISINOPRIL [Concomitant]
  4. TYLENOL-500 [Concomitant]

REACTIONS (2)
  - DIARRHOEA [None]
  - FAECES DISCOLOURED [None]
